FAERS Safety Report 9588188 (Version 1)
Quarter: 2013Q4

REPORT INFORMATION
  Report Type: Spontaneous
  Country: US (occurrence: US)
  Receive Date: 20131003
  Receipt Date: 20131003
  Transmission Date: 20140711
  Serious: No
  Sender: FDA-Public Use
  Company Number: US-AMGEN-USASP2012063104

PATIENT
  Age: 40 Year
  Sex: Male

DRUGS (3)
  1. ENBREL [Suspect]
     Indication: ANKYLOSING SPONDYLITIS
     Dosage: 50 MG, QWK
     Route: 058
  2. PRILOSEC                           /00661201/ [Concomitant]
     Dosage: 10 MG, UNK
  3. MAGNESIUM [Concomitant]
     Dosage: 300 MG, UNK

REACTIONS (3)
  - Hypoaesthesia [Unknown]
  - Chest pain [Unknown]
  - Injection site pain [Unknown]
